FAERS Safety Report 9782723 (Version 1)
Quarter: 2013Q4

REPORT INFORMATION
  Report Type: Spontaneous
  Country: IE (occurrence: IE)
  Receive Date: 20131226
  Receipt Date: 20131226
  Transmission Date: 20140711
  Serious: Yes (Hospitalization)
  Sender: FDA-Public Use
  Company Number: IE-ASTRAZENECA-2013SE92086

PATIENT
  Sex: Male

DRUGS (4)
  1. MERONEM [Suspect]
     Indication: ANTIBIOTIC PROPHYLAXIS
     Route: 042
  2. MERONEM [Suspect]
     Indication: ANTIBIOTIC PROPHYLAXIS
     Route: 042
  3. MERONEM [Suspect]
     Indication: ANTIBIOTIC PROPHYLAXIS
     Route: 042
  4. MERONEM [Suspect]
     Indication: ANTIBIOTIC PROPHYLAXIS
     Route: 042

REACTIONS (2)
  - Device related infection [Not Recovered/Not Resolved]
  - Off label use [Unknown]
